FAERS Safety Report 17652952 (Version 2)
Quarter: 2020Q2

REPORT INFORMATION
  Report Type: Spontaneous
  Country: US (occurrence: US)
  Receive Date: 20200409
  Receipt Date: 20200507
  Transmission Date: 20200713
  Serious: Yes (Death)
  Sender: FDA-Public Use
  Company Number: US-VIFOR (INTERNATIONAL) INC.-VIT-2020-05230

PATIENT
  Age: 72 Year
  Sex: Male
  Weight: 91.6 kg

DRUGS (1)
  1. VELPHORO [Suspect]
     Active Substance: SUCROFERRIC OXYHYDROXIDE
     Indication: HYPERPHOSPHATAEMIA
     Dosage: 1 TABLET THREE TIMES A DAY WITH MEALS
     Route: 048
     Dates: start: 20200207

REACTIONS (1)
  - Death [Fatal]

NARRATIVE: CASE EVENT DATE: 20200331
